FAERS Safety Report 7108075-6 (Version None)
Quarter: 2010Q4

REPORT INFORMATION
  Report Type: 
  Country: None (occurrence: None)
  Receive Date: 20101117
  Receipt Date: 20101108
  Transmission Date: 20110411
  Serious: Yes (Hospitalization)
  Sender: FDA-Public Use
  Company Number: SE-ASTRAZENECA-2010SE53354

PATIENT
  Age: 84 Year
  Sex: Male

DRUGS (7)
  1. FELODIPINE [Suspect]
     Indication: HYPERTENSION
     Route: 048
     Dates: start: 20091120, end: 20100202
  2. ENALAPRIL MALEATE [Suspect]
     Indication: ESSENTIAL HYPERTENSION
     Route: 048
     Dates: start: 20081104, end: 20100202
  3. BISOPROLOL FUMARATE [Suspect]
     Indication: ESSENTIAL HYPERTENSION
     Route: 048
     Dates: start: 20091120, end: 20100202
  4. SIMVASTATIN [Concomitant]
     Route: 048
  5. SIMVASTATIN [Concomitant]
     Route: 065
  6. LAXOBERAL [Concomitant]
     Dosage: 7.5 MG/ML
     Route: 048
  7. TROMBYL [Concomitant]
     Route: 048

REACTIONS (3)
  - DIZZINESS [None]
  - DYSPNOEA [None]
  - ORTHOSTATIC HYPOTENSION [None]
